FAERS Safety Report 6156818-0 (Version None)
Quarter: 2009Q2

REPORT INFORMATION
  Report Type: 
  Country: None (occurrence: None)
  Receive Date: 20090416
  Receipt Date: 20090223
  Transmission Date: 20091009
  Serious: No
  Sender: FDA-Public Use
  Company Number: US-B.I. PHARMACEUTICALS,INC./RIDGEFIELD-2009-BP-02259BP

PATIENT
  Sex: Female

DRUGS (7)
  1. SPIRIVA [Suspect]
     Indication: CHRONIC OBSTRUCTIVE PULMONARY DISEASE
     Dosage: 18MCG
     Route: 055
     Dates: start: 20090101
  2. FLOVENT [Concomitant]
     Indication: CHRONIC OBSTRUCTIVE PULMONARY DISEASE
     Route: 055
     Dates: start: 20030101
  3. PROTONIX [Concomitant]
     Indication: GASTROOESOPHAGEAL REFLUX DISEASE
     Dosage: 40MG
     Dates: start: 20030101
  4. LIPITOR [Concomitant]
     Indication: BLOOD CHOLESTEROL INCREASED
     Dosage: 10MG
     Dates: start: 20030101
  5. THYROID MEDICATION [Concomitant]
     Indication: HYPOTHYROIDISM
     Dosage: .05MG
  6. SINGULAIR [Concomitant]
     Indication: ASTHMA
     Dosage: 10MG
     Dates: start: 20050101
  7. PROCARDIA [Concomitant]
     Indication: ATRIAL FIBRILLATION
     Dates: start: 20080901

REACTIONS (2)
  - EYE PAIN [None]
  - PALPITATIONS [None]
